FAERS Safety Report 8777284 (Version 1)
Quarter: 2012Q4

REPORT INFORMATION
  Report Type: 
  Country: US (occurrence: US)
  Receive Date: 20120910
  Receipt Date: 20120910
  Transmission Date: 20130627
  Serious: No
  Sender: FDA-Public Use
  Company Number: US-ASTRAZENECA-2012SE60283

PATIENT
  Age: 44 Year
  Sex: Male
  Weight: 63.5 kg

DRUGS (3)
  1. SYMBICORT PMDI [Suspect]
     Indication: ASTHMA
     Dosage: 160/4.5 MCG, TWO PUFFS, TWO TIMES A DAY
     Route: 055
     Dates: start: 2009
  2. SYMBICORT PMDI [Suspect]
     Indication: ASTHMA
     Dosage: 160/4.5 MCG, ONE PUFF, DAILY
     Route: 055
  3. VANCERIL [Concomitant]

REACTIONS (3)
  - Dyspepsia [Recovering/Resolving]
  - Dysphonia [Recovering/Resolving]
  - Intentional drug misuse [Unknown]
